FAERS Safety Report 6613204-4 (Version None)
Quarter: 2010Q1

REPORT INFORMATION
  Report Type: 
  Country: None (occurrence: None)
  Receive Date: 20100225
  Receipt Date: 20100211
  Transmission Date: 20100710
  Serious: Yes (Disabling)
  Sender: FDA-Public Use
  Company Number: 2010-0485

PATIENT
  Age: 8 Year
  Sex: Male
  Weight: 28.5 kg

DRUGS (1)
  1. INCRELEX [Suspect]
     Indication: GROWTH HORMONE DEFICIENCY
     Dosage: 128 IU (32 IU, 4 IN 1 D)
     Dates: start: 20081118

REACTIONS (1)
  - THYROID NEOPLASM [None]
